FAERS Safety Report 9617436 (Version 3)
Quarter: 2020Q3

REPORT INFORMATION
  Report Type: Report from Study
  Country: FR (occurrence: FR)
  Receive Date: 20131011
  Receipt Date: 20131108
  Transmission Date: 20201104
  Serious: Yes (Hospitalization)
  Sender: FDA-Public Use
  Company Number: FR-JNJFOC-20120602173

PATIENT
  Age: 19 Year
  Sex: Female
  Weight: 46 kg

DRUGS (35)
  1. DUPHALAC [Concomitant]
     Active Substance: LACTULOSE
     Dosage: 2 DAYS ON PER WEEK
  2. MAGNE B6 [Concomitant]
     Active Substance: MAGNESIUM\PYRIDOXINE
  3. TMC207 [Suspect]
     Active Substance: BEDAQUILINE
     Indication: TUBERCULOSIS
     Route: 048
  4. ZYVOXID [Suspect]
     Active Substance: LINEZOLID
     Indication: TUBERCULOSIS
     Route: 048
  5. TAVANIC [Suspect]
     Active Substance: LEVOFLOXACIN
     Indication: TUBERCULOSIS
     Route: 048
     Dates: start: 20120306
  6. BECILAN [Concomitant]
     Dosage: 2 DAYS ON PER WEEK
  7. DAFALGAN [Concomitant]
     Active Substance: ACETAMINOPHEN
     Dosage: 2 DAYS ON PER WEEK
  8. MOTILIUM [Concomitant]
     Active Substance: DOMPERIDONE
     Dosage: 2 DAYS ON PER WEEK
  9. TMC207 [Suspect]
     Active Substance: BEDAQUILINE
     Indication: TUBERCULOSIS
     Dosage: MONDAY, WEDNESDAY AND FRIDAY
     Route: 048
     Dates: start: 20130514
  10. TAVANIC [Suspect]
     Active Substance: LEVOFLOXACIN
     Indication: TUBERCULOSIS
     Route: 048
  11. TMC207 [Suspect]
     Active Substance: BEDAQUILINE
     Indication: TUBERCULOSIS
     Route: 048
     Dates: start: 20120420
  12. STABLON [Concomitant]
     Active Substance: TIANEPTINE
     Dosage: 1 DOSE OF 12.5 IN THE MORNING, AT MIDTIME AND IN THE EVENING
  13. UVEDOSE [Concomitant]
     Active Substance: CHOLECALCIFEROL
     Dosage: 2 DAYS ON PER WEEK
  14. PARACETAMOL [Concomitant]
     Active Substance: ACETAMINOPHEN
  15. TMC207 [Suspect]
     Active Substance: BEDAQUILINE
     Indication: TUBERCULOSIS
     Route: 048
     Dates: end: 201209
  16. CALCIDIA [Concomitant]
     Active Substance: CALCIUM CARBONATE
     Dosage: IN THE MORNING
  17. BECILAN [Concomitant]
  18. UVEDOSE [Concomitant]
     Active Substance: CHOLECALCIFEROL
  19. LOVENOX [Concomitant]
     Active Substance: ENOXAPARIN SODIUM
     Dosage: 2 DAYS ON PER WEEK
  20. IMOVANE [Concomitant]
     Active Substance: ZOPICLONE
     Dosage: DOSE: 1 PUFF
  21. TAVANIC [Suspect]
     Active Substance: LEVOFLOXACIN
     Indication: TUBERCULOSIS
     Route: 048
  22. INIPOMP [Concomitant]
     Active Substance: PANTOPRAZOLE SODIUM
     Dosage: 2 DAYS ON PER WEEK
  23. MAG?2 [Concomitant]
     Dosage: 2 DAYS ON PER WEEK
  24. DIFFU?K [Concomitant]
     Active Substance: POTASSIUM CHLORIDE
     Dosage: 2 DAYS ON PER WEEK
  25. EUPANTOL [Concomitant]
     Active Substance: PANTOPRAZOLE SODIUM
     Indication: GASTROOESOPHAGEAL REFLUX DISEASE
     Dosage: 2 DAYS ON PER WEEK
     Dates: start: 20111209
  26. XANAX [Concomitant]
     Active Substance: ALPRAZOLAM
     Dosage: DOSE: 1 PUFF
     Route: 048
     Dates: start: 20111209, end: 201308
  27. VITAMIN B1, B6 [Concomitant]
     Indication: VITAMIN B1 DEFICIENCY
     Dates: start: 20111209
  28. ZYVOXID [Suspect]
     Active Substance: LINEZOLID
     Indication: TUBERCULOSIS
     Route: 048
  29. ZYVOXID [Suspect]
     Active Substance: LINEZOLID
     Indication: TUBERCULOSIS
     Dosage: 1 DOSE AT 20 H
     Route: 048
     Dates: start: 20111209
  30. PIRILENE [Concomitant]
     Active Substance: PYRAZINAMIDE
     Indication: TUBERCULOSIS
     Dosage: 1 DOSE AT 6 H
  31. AERIUS (DESLORATADINE) [Concomitant]
     Active Substance: DESLORATADINE
     Dosage: 2 DAYS ON PER WEEK
  32. VENTOLIN [Concomitant]
     Active Substance: ALBUTEROL SULFATE
     Dosage: DOSE: 1 PUFF
  33. PRIMPERAN [Concomitant]
     Active Substance: METOCLOPRAMIDE HYDROCHLORIDE
     Indication: NAUSEA
     Dosage: DOSE: 1 PUFF
     Route: 048
     Dates: start: 20111209
  34. ATARAX [Concomitant]
     Active Substance: HYDROXYZINE HYDROCHLORIDE
     Indication: ANXIETY
     Dosage: DOSE: 1 PUFF
     Dates: start: 20130511, end: 201308
  35. VITAMIN B1, B6 [Concomitant]
     Indication: VITAMIN B6 DEFICIENCY
     Dates: start: 20111209

REACTIONS (5)
  - Hypomagnesaemia [Recovering/Resolving]
  - Inappropriate schedule of product administration [Unknown]
  - Extrasystoles [Recovered/Resolved]
  - Dizziness [Unknown]
  - Nausea [Unknown]

NARRATIVE: CASE EVENT DATE: 201205
